FAERS Safety Report 7033371-0 (Version None)
Quarter: 2010Q4

REPORT INFORMATION
  Report Type: 
  Country: None (occurrence: None)
  Receive Date: 20101007
  Receipt Date: 20100930
  Transmission Date: 20110411
  Serious: Yes (Other)
  Sender: FDA-Public Use
  Company Number: US-US-EMD SERONO, INC.-7016922

PATIENT
  Sex: Male

DRUGS (5)
  1. REBIF [Suspect]
     Indication: MULTIPLE SCLEROSIS
     Route: 058
     Dates: start: 20080101
  2. REBIF [Suspect]
     Route: 058
     Dates: start: 20091020
  3. INSULIN [Concomitant]
     Indication: DIABETES MELLITUS
     Dates: end: 20100101
  4. ENALAPRIL MALEATE [Concomitant]
     Dates: end: 20100101
  5. CYMBALTA [Concomitant]
     Indication: DEPRESSION

REACTIONS (8)
  - BLOOD CHOLESTEROL INCREASED [None]
  - BLOOD GLUCOSE DECREASED [None]
  - CENTRAL NERVOUS SYSTEM LESION [None]
  - FEELING ABNORMAL [None]
  - GLAUCOMA [None]
  - GLYCOSYLATED HAEMOGLOBIN INCREASED [None]
  - INJECTION SITE NODULE [None]
  - INJECTION SITE PAIN [None]
